FAERS Safety Report 21711629 (Version 3)
Quarter: 2023Q1

REPORT INFORMATION
  Report Type: Spontaneous
  Country: GB (occurrence: GB)
  Receive Date: 20221212
  Receipt Date: 20230105
  Transmission Date: 20230417
  Serious: Yes (Other)
  Sender: FDA-Public Use
  Company Number: GB-ALIMERA SCIENCES INC.-GB-A16013-22-000322

PATIENT
  Sex: Male

DRUGS (1)
  1. ILUVIEN [Suspect]
     Active Substance: FLUOCINOLONE ACETONIDE
     Indication: Uveitis
     Dosage: 0.25 MICROGRAM, QD - RIGHT EYE
     Route: 031
     Dates: start: 202210

REACTIONS (3)
  - Hypotony of eye [Recovered/Resolved]
  - Wound secretion [Unknown]
  - Sclerotomy [Recovered/Resolved]

NARRATIVE: CASE EVENT DATE: 20221001
